FAERS Safety Report 9012420 (Version 2)
Quarter: 2013Q1

REPORT INFORMATION
  Report Type: Spontaneous
  Country: US (occurrence: US)
  Receive Date: 20130114
  Receipt Date: 20130214
  Transmission Date: 20140127
  Serious: Yes (Hospitalization, Other)
  Sender: FDA-Public Use
  Company Number: US-ASTELLAS-2013US000339

PATIENT
  Age: 56 None
  Sex: Male

DRUGS (2)
  1. PROGRAF [Suspect]
     Indication: LIVER TRANSPLANT
     Dosage: 1 MG, BID
     Route: 048
     Dates: start: 20120328
  2. CELLCEPT                           /01275102/ [Concomitant]
     Indication: LIVER TRANSPLANT
     Dosage: 1000 MG, BID
     Route: 048

REACTIONS (7)
  - Treatment noncompliance [Unknown]
  - Liver transplant rejection [Recovering/Resolving]
  - Anaemia [Unknown]
  - Diabetes mellitus [Unknown]
  - Renal failure acute [Recovering/Resolving]
  - Hyponatraemia [Recovered/Resolved]
  - Alcohol use [Unknown]
